FAERS Safety Report 24742569 (Version 1)
Quarter: 2024Q4

REPORT INFORMATION
  Report Type: Other
  Country: AU (occurrence: AU)
  Receive Date: 20241217
  Receipt Date: 20241217
  Transmission Date: 20250115
  Serious: Yes (Other)
  Sender: LUPIN
  Company Number: None

PATIENT

DRUGS (4)
  1. VORICONAZOLE [Interacting]
     Active Substance: VORICONAZOLE
     Indication: Product used for unknown indication
     Dosage: UNK
     Route: 065
  2. MYCOPHENOLATE SODIUM [Suspect]
     Active Substance: MYCOPHENOLATE SODIUM
     Indication: Product used for unknown indication
     Dosage: UNK
     Route: 065
  3. PREDNISONE [Interacting]
     Active Substance: PREDNISONE
     Indication: Product used for unknown indication
     Dosage: UNK
     Route: 065
  4. TACROLIMUS [Interacting]
     Active Substance: TACROLIMUS
     Indication: Product used for unknown indication
     Dosage: UNK
     Route: 065

REACTIONS (7)
  - Complications of transplanted kidney [Unknown]
  - Drug interaction [Unknown]
  - Oedema peripheral [Unknown]
  - Osteomyelitis [Unknown]
  - Polyomavirus-associated nephropathy [Unknown]
  - Scedosporium infection [Unknown]
  - Staphylococcal infection [Unknown]
